FAERS Safety Report 7266373-X (Version None)
Quarter: 2011Q1

REPORT INFORMATION
  Report Type: 
  Country: None (occurrence: None)
  Receive Date: 20110120
  Receipt Date: 20110110
  Transmission Date: 20110831
  Serious: Yes (Other)
  Sender: FDA-Public Use
  Company Number: 1000018055

PATIENT
  Age: 46 Year
  Sex: Female

DRUGS (1)
  1. ESCITALOPRAM [Suspect]
     Indication: ANXIETY
     Dosage: 10 MG (10 MG, 1 IN 1 D), ORAL
     Route: 048
     Dates: start: 20101204, end: 20101206

REACTIONS (5)
  - DIARRHOEA [None]
  - NAUSEA [None]
  - VOMITING [None]
  - TONIC CLONIC MOVEMENTS [None]
  - MUSCLE SPASMS [None]
